FAERS Safety Report 9928524 (Version 3)
Quarter: 2014Q2

REPORT INFORMATION
  Report Type: Report from Study
  Country: JP (occurrence: JP)
  Receive Date: 20140227
  Receipt Date: 20140404
  Transmission Date: 20141212
  Serious: Yes (Death)
  Sender: FDA-Public Use
  Company Number: JP-SANOFI-AVENTIS-2013SA092538

PATIENT
  Age: 20 Month
  Sex: Male
  Weight: 13 kg

DRUGS (11)
  1. THYMOGLOBULINE [Suspect]
     Indication: BONE MARROW CONDITIONING REGIMEN
     Route: 042
     Dates: start: 20130617, end: 20130618
  2. ETOPOSIDE [Concomitant]
     Indication: BONE MARROW CONDITIONING REGIMEN
     Dates: start: 20130610, end: 20130616
  3. ETOPOSIDE [Concomitant]
     Indication: BONE MARROW CONDITIONING REGIMEN
     Dates: start: 20130620, end: 20130622
  4. CYLOCIDE [Concomitant]
     Indication: BONE MARROW CONDITIONING REGIMEN
     Route: 041
     Dates: start: 20130610, end: 20130616
  5. FLUDARA [Concomitant]
     Indication: BONE MARROW CONDITIONING REGIMEN
     Dates: start: 20130617, end: 20130622
  6. SOL-MELCORT [Concomitant]
     Indication: PROPHYLAXIS
     Dates: start: 20130617, end: 20130618
  7. FUNGUARD [Concomitant]
     Indication: INFECTION PROPHYLAXIS
     Dates: start: 20130502, end: 20130622
  8. ACICLOVIR [Concomitant]
     Indication: INFECTION PROPHYLAXIS
     Dates: start: 20130610, end: 20130722
  9. CARBENIN [Concomitant]
     Indication: INFECTION
     Route: 041
     Dates: start: 20130616, end: 20130621
  10. PREDONINE [Concomitant]
     Indication: EPSTEIN-BARR VIRUS INFECTION
     Dates: start: 20130405, end: 20130722
  11. VENOGLOBULIN-IH [Concomitant]
     Indication: INFECTION PROPHYLAXIS
     Route: 042
     Dates: start: 20130617, end: 20130617

REACTIONS (2)
  - Multi-organ failure [Fatal]
  - Pneumonia adenoviral [Fatal]
